FAERS Safety Report 19964871 (Version 3)
Quarter: 2021Q4

REPORT INFORMATION
  Report Type: Spontaneous
  Country: US (occurrence: US)
  Receive Date: 20211018
  Receipt Date: 20211210
  Transmission Date: 20220303
  Serious: Yes (Hospitalization)
  Sender: FDA-Public Use
  Company Number: US-CELGENE-USA-20211003325

PATIENT
  Sex: Female

DRUGS (1)
  1. INREBIC [Suspect]
     Active Substance: FEDRATINIB HYDROCHLORIDE
     Indication: Myelofibrosis
     Dosage: 200 MILLIGRAM
     Route: 048
     Dates: start: 20210915

REACTIONS (3)
  - Renal failure [Unknown]
  - Gait inability [Unknown]
  - Nausea [Unknown]

NARRATIVE: CASE EVENT DATE: 20210101
